FAERS Safety Report 7625897-3 (Version None)
Quarter: 2011Q3

REPORT INFORMATION
  Report Type: 
  Country: None (occurrence: None)
  Receive Date: 20110721
  Receipt Date: 20110712
  Transmission Date: 20111222
  Serious: Yes (Other)
  Sender: FDA-Public Use
  Company Number: US-ASTRAZENECA-2011SE11841

PATIENT
  Age: 55 Year
  Sex: Female
  Weight: 120.2 kg

DRUGS (10)
  1. POTASSIUM [Concomitant]
  2. SYNTHROID [Concomitant]
  3. CELEXA [Concomitant]
  4. LISINOPRIL [Concomitant]
  5. METFORMIN [Concomitant]
  6. DOXEPIN [Concomitant]
  7. XOPENEX [Concomitant]
  8. LIPITOR [Concomitant]
  9. DEPAKOTE [Concomitant]
  10. SYMBICORT [Suspect]
     Dosage: 160/4.5MCG
     Route: 055

REACTIONS (4)
  - CEREBROVASCULAR ACCIDENT [None]
  - TREMOR [None]
  - DEPRESSION [None]
  - RESTLESS LEGS SYNDROME [None]
